FAERS Safety Report 9759589 (Version 3)
Quarter: 2014Q2

REPORT INFORMATION
  Report Type: Spontaneous
  Country: US (occurrence: None)
  Receive Date: 20131212
  Receipt Date: 20140516
  Transmission Date: 20141212
  Serious: Yes (Hospitalization, Other)
  Sender: FDA-Public Use
  Company Number: 2033605

PATIENT
  Age: 53 Year
  Sex: Male

DRUGS (8)
  1. LIDOCAINE HCL [Suspect]
     Indication: SPINAL OSTEOARTHRITIS
     Dosage: UNKNOWN, ONCE, NECK (UNKNOWN)?
     Route: 050
     Dates: start: 20130617, end: 20130617
  2. LIDOCAINE HCL [Suspect]
     Indication: SPINAL OSTEOARTHRITIS
     Dosage: UNKNOWN, ONCE, NECK (UNKNOWN)?
     Route: 050
     Dates: start: 20130617, end: 20130617
  3. LIDOCAINE HCL [Suspect]
     Indication: INTERVERTEBRAL DISC DEGENERATION
     Dosage: UNKNOWN, ONCE, NECK (UNKNOWN)?
     Route: 050
     Dates: start: 20130617, end: 20130617
  4. LIDOCAINE HCL [Suspect]
     Indication: SPINAL OSTEOARTHRITIS
     Dosage: UNKNOWN, ONCE, NECK (UNKNOWN)?
     Route: 050
     Dates: start: 20130617, end: 20130617
  5. CORTICOSTEROIDS [Suspect]
     Indication: SPINAL OSTEOARTHRITIS
     Dosage: UNKNOWN, ONCE, NECK, (UNKNOWN)
     Route: 050
     Dates: start: 20130617, end: 20130617
  6. CORTICOSTEROIDS [Suspect]
     Indication: INTERVERTEBRAL DISC DEGENERATION
     Dosage: UNKNOWN, ONCE, NECK, (UNKNOWN)
     Route: 050
     Dates: start: 20130617, end: 20130617
  7. CORTICOSTEROIDS [Suspect]
     Indication: SPINAL OSTEOARTHRITIS
     Dosage: UNKNOWN, ONCE, NECK, (UNKNOWN)
     Route: 050
     Dates: start: 20130617, end: 20130617
  8. CORTICOSTEROIDS [Suspect]
     Indication: INTERVERTEBRAL DISC DEGENERATION
     Dosage: UNKNOWN, ONCE, NECK, (UNKNOWN)
     Route: 050
     Dates: start: 20130617, end: 20130617

REACTIONS (13)
  - Endocarditis [None]
  - Meningitis bacterial [None]
  - Acute respiratory distress syndrome [None]
  - Anaemia [None]
  - Disseminated intravascular coagulation [None]
  - Renal failure [None]
  - Aneurysm ruptured [None]
  - Mitral valve disease [None]
  - Product contamination [None]
  - Mental status changes [None]
  - Vomiting [None]
  - Product quality issue [None]
  - Medication error [None]
